FAERS Safety Report 6732140-6 (Version None)
Quarter: 2010Q2

REPORT INFORMATION
  Report Type: 
  Country: None (occurrence: None)
  Receive Date: 20100519
  Receipt Date: 20100510
  Transmission Date: 20101027
  Serious: Yes (Other)
  Sender: FDA-Public Use
  Company Number: US-ALLERGAN-1004308US

PATIENT
  Age: 42 Year
  Sex: Female
  Weight: 56.689 kg

DRUGS (7)
  1. BOTOX COSMETIC [Suspect]
     Indication: SKIN WRINKLING
     Dosage: 15 UNITS, SINGLE
     Route: 030
     Dates: start: 20100317, end: 20100317
  2. ACIPHEX [Concomitant]
     Indication: GASTROOESOPHAGEAL REFLUX DISEASE
     Dosage: 20 MG, QD
     Route: 048
     Dates: end: 20100324
  3. WELLBUTRIN [Concomitant]
     Indication: ANXIETY
     Dosage: 300 MG, QD
     Route: 048
  4. WELLBUTRIN [Concomitant]
     Indication: DEPRESSION
  5. FOCALIN XR [Concomitant]
     Indication: ATTENTION DEFICIT/HYPERACTIVITY DISORDER
     Dosage: 20 MG, QD
     Route: 048
  6. SEROQUEL [Concomitant]
     Indication: ANXIETY
     Dosage: 100 MG, QHS
     Route: 048
  7. SEROQUEL [Concomitant]
     Indication: DEPRESSION

REACTIONS (30)
  - ABDOMINAL DISCOMFORT [None]
  - ALOPECIA [None]
  - ASTHENIA [None]
  - BURNING SENSATION [None]
  - CHEST DISCOMFORT [None]
  - CONSTIPATION [None]
  - CONTUSION [None]
  - DECREASED APPETITE [None]
  - DYSPHAGIA [None]
  - DYSPHONIA [None]
  - DYSPNOEA [None]
  - EYES SUNKEN [None]
  - FATIGUE [None]
  - GASTROOESOPHAGEAL REFLUX DISEASE [None]
  - GINGIVAL BLEEDING [None]
  - HAEMOPTYSIS [None]
  - HEADACHE [None]
  - INFLUENZA LIKE ILLNESS [None]
  - INSOMNIA [None]
  - LOSS OF CONSCIOUSNESS [None]
  - MICTURITION URGENCY [None]
  - MUSCULAR WEAKNESS [None]
  - NAUSEA [None]
  - PAIN IN EXTREMITY [None]
  - PRESYNCOPE [None]
  - PYREXIA [None]
  - SINUS CONGESTION [None]
  - THROAT TIGHTNESS [None]
  - VISION BLURRED [None]
  - WEIGHT DECREASED [None]
